FAERS Safety Report 6694065-4 (Version None)
Quarter: 2010Q2

REPORT INFORMATION
  Report Type: 
  Country: None (occurrence: None)
  Receive Date: 20100423
  Receipt Date: 20100409
  Transmission Date: 20101027
  Serious: Yes (Hospitalization)
  Sender: FDA-Public Use
  Company Number: US-ELI_LILLY_AND_COMPANY-US201004003244

PATIENT
  Sex: Male

DRUGS (2)
  1. ADCIRCA [Suspect]
     Dosage: 40 MG, DAILY (1/D)
     Dates: start: 20100101
  2. TREPROSTINIL [Concomitant]

REACTIONS (5)
  - ABDOMINAL DISCOMFORT [None]
  - ABDOMINAL PAIN UPPER [None]
  - BRONCHITIS [None]
  - URINARY BLADDER HAEMORRHAGE [None]
  - VOMITING [None]
